FAERS Safety Report 7191002-3 (Version None)
Quarter: 2010Q4

REPORT INFORMATION
  Report Type: 
  Country: None (occurrence: None)
  Receive Date: 20101222
  Receipt Date: 20101222
  Transmission Date: 20110411
  Serious: Yes (Other)
  Sender: FDA-Public Use
  Company Number: None

PATIENT
  Age: 81 Year
  Sex: Female
  Weight: 61.2356 kg

DRUGS (3)
  1. DARVOCET-N 100 [Suspect]
     Indication: ARTHRITIS
     Dosage: 1-2 EVERY 6 HRS PILL
  2. DARVOCET-N 100 [Suspect]
     Indication: SCOLIOSIS
     Dosage: 1-2 EVERY 6 HRS PILL
  3. TYLENOL [Concomitant]

REACTIONS (6)
  - BALANCE DISORDER [None]
  - DIZZINESS [None]
  - GAIT DISTURBANCE [None]
  - HEAD INJURY [None]
  - MULTIPLE INJURIES [None]
  - SYNCOPE [None]
